FAERS Safety Report 5065740-2 (Version None)
Quarter: 2006Q3

REPORT INFORMATION
  Report Type: 
  Country: None (occurrence: None)
  Receive Date: 20060731
  Receipt Date: 20060605
  Transmission Date: 20061208
  Serious: Yes (Other)
  Sender: FDA-Public Use
  Company Number: US-ROCHE-450810

PATIENT
  Age: 63 Year
  Sex: Female
  Weight: 68 kg

DRUGS (1)
  1. BONIVA [Suspect]
     Indication: OSTEOPOROSIS
     Dosage: STRENGTH: REPORTED AS 150, ROUTE REPORTED AS ^O^
     Route: 065
     Dates: start: 20060515, end: 20060517

REACTIONS (1)
  - MOUTH ULCERATION [None]
